FAERS Safety Report 24719823 (Version 1)
Quarter: 2024Q4

REPORT INFORMATION
  Report Type: Report from Study
  Country: BR (occurrence: BR)
  Receive Date: 20241211
  Receipt Date: 20241211
  Transmission Date: 20250115
  Serious: Yes (Other)
  Sender: ALEXION PHARMACEUTICALS
  Company Number: BR-ASTRAZENECA-202412SAM002171BR

PATIENT

DRUGS (12)
  1. TAGRISSO [Suspect]
     Active Substance: OSIMERTINIB
     Route: 065
  2. TAGRISSO [Suspect]
     Active Substance: OSIMERTINIB
     Route: 065
  3. TAGRISSO [Suspect]
     Active Substance: OSIMERTINIB
     Route: 065
  4. TAGRISSO [Suspect]
     Active Substance: OSIMERTINIB
     Route: 065
  5. UNSPECIFIED INGREDIENT [Suspect]
     Active Substance: UNSPECIFIED INGREDIENT
     Route: 065
  6. UNSPECIFIED INGREDIENT [Suspect]
     Active Substance: UNSPECIFIED INGREDIENT
     Route: 065
  7. UNSPECIFIED INGREDIENT [Suspect]
     Active Substance: UNSPECIFIED INGREDIENT
     Route: 065
  8. UNSPECIFIED INGREDIENT [Suspect]
     Active Substance: UNSPECIFIED INGREDIENT
     Route: 065
  9. IRESSA [Suspect]
     Active Substance: GEFITINIB
     Route: 065
  10. IRESSA [Suspect]
     Active Substance: GEFITINIB
     Route: 065
  11. IRESSA [Suspect]
     Active Substance: GEFITINIB
     Route: 065
  12. IRESSA [Suspect]
     Active Substance: GEFITINIB
     Route: 065

REACTIONS (3)
  - Toxicity to various agents [Unknown]
  - Malignant neoplasm progression [Unknown]
  - Diarrhoea [Unknown]
